APPROVED DRUG PRODUCT: CRESTOR
Active Ingredient: ROSUVASTATIN CALCIUM
Strength: EQ 20MG BASE
Dosage Form/Route: TABLET;ORAL
Application: N021366 | Product #004 | TE Code: AB
Applicant: ASTRAZENECA UK LTD
Approved: Aug 12, 2003 | RLD: Yes | RS: No | Type: RX